FAERS Safety Report 7964149-9 (Version None)
Quarter: 2011Q4

REPORT INFORMATION
  Report Type: 
  Country: None (occurrence: None)
  Receive Date: 20111206
  Receipt Date: 20111123
  Transmission Date: 20120403
  Serious: Yes (Hospitalization)
  Sender: FDA-Public Use
  Company Number: SE-GDP-11412430

PATIENT
  Sex: Male

DRUGS (5)
  1. DIAZEPAM DESITIN ( TO UNKNOWN) [Concomitant]
  2. ORACEA [Suspect]
     Indication: ROSACEA
     Dosage: (1 DF QD ORAL)
     Route: 048
     Dates: start: 20111005
  3. RESULAX ( TO UNKNOWN) [Concomitant]
  4. ERGENYL ( TO UNKNOWN) [Concomitant]
  5. MOVICOL /01749801/ ( TO UNKNOWN) [Concomitant]

REACTIONS (3)
  - PYREXIA [None]
  - NEUTROPENIA [None]
  - THROMBOCYTOPENIA [None]
